FAERS Safety Report 6306632-8 (Version None)
Quarter: 2009Q3

REPORT INFORMATION
  Report Type: 
  Country: None (occurrence: None)
  Receive Date: 20090812
  Receipt Date: 20090807
  Transmission Date: 20100115
  Serious: Yes (Hospitalization)
  Sender: FDA-Public Use
  Company Number: B0582752A

PATIENT
  Sex: Male

DRUGS (15)
  1. HYCAMTIN [Suspect]
     Route: 042
     Dates: start: 20081216
  2. AMRUBICIN HYDROCHLORIDE [Suspect]
     Dosage: 58MG PER DAY
     Route: 042
     Dates: start: 20090428, end: 20090521
  3. LANSOPRAZOLE [Concomitant]
     Dosage: 30MG PER DAY
     Route: 048
  4. RADIOTHERAPY [Concomitant]
     Dates: start: 20090330, end: 20090410
  5. ZOPICLONE [Concomitant]
     Dosage: 7.5MG PER DAY
     Route: 048
  6. REBAMIPIDE [Concomitant]
     Dosage: 300MG PER DAY
     Route: 048
  7. ETIZOLAM [Concomitant]
     Dosage: .5MG PER DAY
     Route: 048
  8. DOMPERIDONE [Concomitant]
     Dosage: 30MG PER DAY
     Route: 048
  9. PREDNISOLONE [Concomitant]
     Dosage: 5MG PER DAY
     Route: 048
  10. SENNOSIDE [Concomitant]
     Dosage: 12MG PER DAY
     Route: 048
  11. TAMSULOSIN HYDROCHLORIDE [Concomitant]
     Dosage: .2MG PER DAY
     Route: 048
  12. AZULENE SULFONATE SODIUM [Concomitant]
  13. MAGNESIUM OXIDE [Concomitant]
     Dosage: 15G PER DAY
     Route: 048
  14. CISPLATIN [Concomitant]
     Route: 042
     Dates: start: 20080123
  15. IRINOTECAN HYDROCHLORIDE [Concomitant]
     Route: 042
     Dates: start: 20080123

REACTIONS (3)
  - INTERSTITIAL LUNG DISEASE [None]
  - NEUTROPHIL COUNT DECREASED [None]
  - PYREXIA [None]
